FAERS Safety Report 5208888-1 (Version None)
Quarter: 2007Q1

REPORT INFORMATION
  Report Type: 
  Country: None (occurrence: None)
  Receive Date: 20070112
  Receipt Date: 20070112
  Transmission Date: 20070707
  Serious: Yes (Other)
  Sender: FDA-Public Use
  Company Number: None

PATIENT
  Age: 41 Year
  Sex: Female
  Weight: 80.7403 kg

DRUGS (1)
  1. MIRACLE PLUS [Suspect]
     Indication: NAIL DISCOLOURATION
     Dates: start: 20061030, end: 20061102

REACTIONS (5)
  - ARTHRALGIA [None]
  - MYALGIA [None]
  - OEDEMA PERIPHERAL [None]
  - RASH [None]
  - RASH PUSTULAR [None]
